FAERS Safety Report 4687985-3 (Version None)
Quarter: 2005Q2

REPORT INFORMATION
  Report Type: 
  Country: None (occurrence: None)
  Receive Date: 20050608
  Receipt Date: 20050526
  Transmission Date: 20051028
  Serious: Yes (Hospitalization, Other)
  Sender: FDA-Public Use
  Company Number: HQWYE015914APR05

PATIENT
  Age: 49 Year
  Sex: Male
  Weight: 90.8 kg

DRUGS (18)
  1. RAPAMUNE [Suspect]
     Indication: PROPHYLAXIS
     Dosage: SEE IMAGE
     Route: 048
     Dates: start: 20030315
  2. RAPAMUNE [Suspect]
     Indication: PROPHYLAXIS
     Dosage: SEE IMAGE
     Route: 048
     Dates: start: 20050307
  3. LIPITOR [Concomitant]
  4. CELLCEPT (MYOCOHENOLATE MOFETIL) [Concomitant]
  5. PREDNISONE [Concomitant]
  6. CROMOLYN SODIUM (CROMOGLICATE SODIUM) [Concomitant]
  7. NOVOLIN R [Concomitant]
  8. ASPIRIN [Concomitant]
  9. IRON (IRON) [Concomitant]
  10. CALCIUM CARBONATE (CALCIUM CARBONATE0 [Concomitant]
  11. CALCITRIOL [Concomitant]
  12. MIACALCIN [Concomitant]
  13. POLYSPORIN (BACITRACIN/POLYMYXIN B SULFATE) [Concomitant]
  14. LYSINE (LYSINE) [Concomitant]
  15. NORVASC [Concomitant]
  16. FUROSEMIDE [Concomitant]
  17. METOPROLOL TARTRATE [Concomitant]
  18. AVAPRO [Concomitant]

REACTIONS (13)
  - ANKLE FRACTURE [None]
  - BLOOD GLUCOSE INCREASED [None]
  - CELLULITIS [None]
  - DECREASED APPETITE [None]
  - DIABETIC VASCULAR DISORDER [None]
  - DIALYSIS [None]
  - INJURY [None]
  - NAUSEA [None]
  - NECROSIS [None]
  - OSTEOMYELITIS [None]
  - PYREXIA [None]
  - TOE AMPUTATION [None]
  - WOUND DEBRIDEMENT [None]
